FAERS Safety Report 16935554 (Version 1)
Quarter: 2019Q4

REPORT INFORMATION
  Report Type: Spontaneous
  Country: US (occurrence: US)
  Receive Date: 20191018
  Receipt Date: 20191018
  Transmission Date: 20200122
  Serious: No
  Sender: FDA-Public Use
  Company Number: US-SA-2019SA287946

PATIENT
  Sex: Female

DRUGS (1)
  1. PRALUENT [Suspect]
     Active Substance: ALIROCUMAB
     Dosage: 75 MG, QOW
     Dates: start: 201909

REACTIONS (9)
  - Productive cough [Unknown]
  - Pyrexia [Unknown]
  - Musculoskeletal pain [Unknown]
  - Eye pain [Unknown]
  - Rhinorrhoea [Unknown]
  - Back pain [Unknown]
  - Pain [Unknown]
  - Influenza [Unknown]
  - Pain in extremity [Unknown]

NARRATIVE: CASE EVENT DATE: 201910
